FAERS Safety Report 10047814 (Version 1)
Quarter: 2014Q1

REPORT INFORMATION
  Report Type: Spontaneous
  Country: US (occurrence: None)
  Receive Date: 20140327
  Receipt Date: 20140327
  Transmission Date: 20141002
  Serious: Yes (Death)
  Sender: FDA-Public Use
  Company Number: AUR-APL-2014-03665

PATIENT
  Age: 85 Year
  Sex: Male

DRUGS (2)
  1. OXYCODONE+PARACETAMOL [Suspect]
     Indication: PRODUCT USED FOR UNKNOWN INDICATION
     Route: 048
  2. CARBON MONOXIDE (CARBON MONOXIDE) (CARBON MONOXIDE) [Suspect]
     Indication: PRODUCT USED FOR UNKNOWN INDICATION

REACTIONS (4)
  - Poisoning [None]
  - Exposure via ingestion [None]
  - Exposure via inhalation [None]
  - Intentional drug misuse [None]
